FAERS Safety Report 9104096 (Version 1)
Quarter: 2013Q1

REPORT INFORMATION
  Report Type: Spontaneous
  Country: FR (occurrence: FR)
  Receive Date: 20130219
  Receipt Date: 20130219
  Transmission Date: 20140127
  Serious: Yes (Other)
  Sender: FDA-Public Use
  Company Number: FR-BAYER-2013-000817

PATIENT
  Age: 25 Year
  Sex: Female
  Weight: 59 kg

DRUGS (4)
  1. ADALATE [Suspect]
     Indication: ABORTION THREATENED
     Dosage: 10 MG, EVERY 10 MINS FOR 1 HOUR
     Route: 064
     Dates: start: 20121121
  2. ADALATE [Suspect]
     Indication: ABORTION THREATENED
     Dosage: 1 DF, TID (20 MG EACH)
  3. VENOFER [Suspect]
     Indication: ANAEMIA
     Dosage: UNK
     Route: 064
     Dates: start: 20121122, end: 20121124
  4. SPASFON [Concomitant]
     Dosage: UNK
     Route: 064
     Dates: start: 20121123

REACTIONS (2)
  - Foetal death [None]
  - Bradycardia foetal [None]
